FAERS Safety Report 8514063-5 (Version None)
Quarter: 2012Q3

REPORT INFORMATION
  Report Type: 
  Country: None (occurrence: None)
  Receive Date: 20120717
  Receipt Date: 20120710
  Transmission Date: 20120928
  Serious: Yes (Hospitalization)
  Sender: FDA-Public Use
  Company Number: US-MSD-1206USA05571

PATIENT

DRUGS (29)
  1. BLINDED BOCEPREVIR [Suspect]
     Indication: HEPATITIS C
     Dosage: A
     Route: 048
     Dates: start: 20120111, end: 20120404
  2. REBETOL [Suspect]
     Dosage: 2 DF, QAM
     Route: 048
     Dates: start: 20120411, end: 20120416
  3. REBETOL [Suspect]
     Dosage: 3 DF, QAM
     Route: 048
     Dates: start: 20120417, end: 20120430
  4. BLINDED THERAPY [Suspect]
     Dosage: UNK
     Route: 048
  5. PEGINTERFERON ALFA-2B [Suspect]
     Indication: HEPATITIS C
     Dosage: A
     Route: 048
     Dates: start: 20120111, end: 20120404
  6. BLINDED THERAPY [Suspect]
     Dosage: E
     Route: 048
     Dates: start: 20120111, end: 20120404
  7. BLINDED POST TRIAL THERAPY [Suspect]
     Indication: HEPATITIS C
     Dosage: A
     Route: 048
     Dates: start: 20120111, end: 20120404
  8. BLINDED THERAPY [Suspect]
     Dosage: G
     Route: 048
     Dates: start: 20120111, end: 20120404
  9. BLINDED MK-5172 [Suspect]
     Indication: HEPATITIS C
     Dosage: A
     Route: 048
     Dates: start: 20120111, end: 20120404
  10. RIBAVIRIN [Suspect]
     Indication: HEPATITIS C
     Dosage: A
     Route: 048
     Dates: start: 20120111, end: 20120404
  11. BLINDED THERAPY [Suspect]
     Dosage: H
     Route: 048
     Dates: start: 20120111, end: 20120404
  12. LISINOPRIL [Concomitant]
     Indication: HYPERTENSION
     Dosage: 40 MG, QD
     Route: 048
     Dates: start: 20120211
  13. REBETOL [Suspect]
     Dosage: 3 DF, QPM
     Route: 048
     Dates: start: 20120111, end: 20120406
  14. BLINDED THERAPY [Suspect]
     Dosage: UNK DF, UNK
     Route: 048
  15. BLINDED THERAPY [Suspect]
     Route: 048
  16. PEG-INTRON [Suspect]
     Indication: HEPATITIS C
     Dosage: 0.5 ML, QW
     Route: 048
     Dates: start: 20120110, end: 20120522
  17. BLINDED THERAPY [Suspect]
     Dosage: D
     Route: 048
     Dates: start: 20120111, end: 20120404
  18. REBETOL [Suspect]
     Dosage: UNK
  19. BLINDED THERAPY [Suspect]
     Dosage: 4 DF, TID
     Route: 048
     Dates: start: 20120208, end: 20120404
  20. PROTONIX [Concomitant]
     Indication: GASTROOESOPHAGEAL REFLUX DISEASE
     Dosage: 10 MG, PRN
     Route: 048
     Dates: start: 20071201
  21. BLINDED PRE TRIAL THERAPY [Suspect]
     Indication: HEPATITIS C
     Dosage: A
     Route: 048
     Dates: start: 20120111, end: 20120404
  22. BLINDED THERAPY [Suspect]
     Indication: HEPATITIS C
     Dosage: B
     Route: 048
     Dates: start: 20120111, end: 20120404
  23. REBETOL [Suspect]
     Indication: HEPATITIS C
     Dosage: 3 DF, QAM
     Route: 048
     Dates: start: 20120111, end: 20120410
  24. PLACEBO [Suspect]
     Indication: HEPATITIS C
     Dosage: A
     Route: 048
     Dates: start: 20120111, end: 20120404
  25. BLINDED THERAPY [Suspect]
     Dosage: C
     Route: 048
     Dates: start: 20120111, end: 20120404
  26. BLINDED THERAPY [Suspect]
     Dosage: F
     Route: 048
     Dates: start: 20120111, end: 20120404
  27. REBETOL [Suspect]
     Dosage: 2 DF, QPM
     Route: 048
     Dates: start: 20120407
  28. REBETOL [Suspect]
     Dosage: 2 DF, QAM
     Route: 048
     Dates: start: 20120501
  29. PAXIL [Suspect]
     Indication: DEPRESSION
     Dosage: 40 MG, QD
     Route: 048
     Dates: start: 20120322

REACTIONS (1)
  - BRONCHITIS [None]
